FAERS Safety Report 8007541-9 (Version None)
Quarter: 2011Q4

REPORT INFORMATION
  Report Type: 
  Country: None (occurrence: None)
  Receive Date: 20111221
  Receipt Date: 20110113
  Transmission Date: 20120403
  Serious: No
  Sender: FDA-Public Use
  Company Number: AEUSA201100008

PATIENT
  Sex: Male

DRUGS (1)
  1. HYPERHEP B [Suspect]
     Indication: PROPHYLAXIS
     Dosage: 0.7 ML;X1;IM
     Route: 030
     Dates: start: 20101216, end: 20101216

REACTIONS (2)
  - NO ADVERSE EVENT [None]
  - INCORRECT DOSE ADMINISTERED [None]
